FAERS Safety Report 4624010-4 (Version None)
Quarter: 2005Q1

REPORT INFORMATION
  Report Type: 
  Country: None (occurrence: None)
  Receive Date: 20050329
  Receipt Date: 20050317
  Transmission Date: 20050727
  Serious: Yes (Death, Life-Threatening, Hospitalization)
  Sender: FDA-Public Use
  Company Number: 2005-00520

PATIENT
  Age: 78 Year
  Sex: Male

DRUGS (1)
  1. VELCADE [Suspect]
     Indication: MULTIPLE MYELOMA
     Dosage: INTRAVENOUS
     Route: 042
     Dates: start: 20040815, end: 20041215

REACTIONS (4)
  - CALCINOSIS [None]
  - CARDIAC DISORDER [None]
  - EXTRAPYRAMIDAL DISORDER [None]
  - MUTISM [None]
